FAERS Safety Report 11351474 (Version 1)
Quarter: 2015Q3

REPORT INFORMATION
  Report Type: Spontaneous
  Country: US (occurrence: US)
  Receive Date: 20150807
  Receipt Date: 20150807
  Transmission Date: 20151125
  Serious: No
  Sender: FDA-Public Use
  Company Number: US-JNJFOC-20141101063

PATIENT
  Age: 71 Year
  Sex: Female
  Weight: 63.05 kg

DRUGS (3)
  1. LEVOTHYROXINE. [Concomitant]
     Active Substance: LEVOTHYROXINE
     Indication: THYROID DISORDER
     Route: 065
  2. WOMENS ROGAINE EXTRA STRENGTH [Suspect]
     Active Substance: MINOXIDIL
     Indication: HAIR GROWTH ABNORMAL
     Dosage: PEA SIZE
     Route: 061
     Dates: start: 20141023, end: 20141027
  3. WOMENS ROGAINE EXTRA STRENGTH [Suspect]
     Active Substance: MINOXIDIL
     Route: 061

REACTIONS (4)
  - Swelling [Recovering/Resolving]
  - Inappropriate schedule of drug administration [Unknown]
  - Rash [Recovering/Resolving]
  - Erythema [Recovering/Resolving]
